FAERS Safety Report 8990525 (Version 1)
Quarter: 2012Q4

REPORT INFORMATION
  Report Type: 
  Country: US (occurrence: US)
  Receive Date: 20121228
  Receipt Date: 20121228
  Transmission Date: 20130627
  Serious: Yes (Other)
  Sender: FDA-Public Use
  Company Number: US-GLAXOSMITHKLINE-A1006505A

PATIENT
  Sex: Female

DRUGS (1)
  1. BENLYSTA [Suspect]
     Indication: PRODUCT USED FOR UNKNOWN INDICATION
     Dosage: 120MG Cyclic
     Route: 042
     Dates: start: 20120201

REACTIONS (5)
  - Systemic lupus erythematosus [Not Recovered/Not Resolved]
  - Drug ineffective [Unknown]
  - Rash [Not Recovered/Not Resolved]
  - Pruritus [Not Recovered/Not Resolved]
  - Arthralgia [Not Recovered/Not Resolved]
